FAERS Safety Report 20666931 (Version 3)
Quarter: 2022Q2

REPORT INFORMATION
  Report Type: Spontaneous
  Country: FR (occurrence: FR)
  Receive Date: 20220403
  Receipt Date: 20220411
  Transmission Date: 20220721
  Serious: Yes (Life-Threatening, Other)
  Sender: FDA-Public Use
  Company Number: FR-VALIDUS PHARMACEUTICALS LLC-FR-VDP-2022-015307

PATIENT

DRUGS (24)
  1. FUROSEMIDE [Suspect]
     Active Substance: FUROSEMIDE
     Indication: Cardiac failure
     Dosage: 160 MG, QD, TOTAL DOSE, ONCE/SINGLE ADMINISTRATION
     Route: 048
     Dates: start: 20220127, end: 20220127
  2. ALLOPURINOL [Suspect]
     Active Substance: ALLOPURINOL
     Indication: Product used for unknown indication
     Dosage: 800 MG, QD, TOTAL DOSE ONCE/SINGLE ADMINISTRATION
     Route: 048
     Dates: start: 20220127, end: 20220127
  3. CYAMEMAZINE [Suspect]
     Active Substance: CYAMEMAZINE
     Indication: Bipolar disorder
     Dosage: 200 MG, QD, TOTAL DOSE, ONCE/SINGLE ADMINISTRATION
     Route: 048
     Dates: start: 20220127, end: 20220127
  4. ZOPICLONE [Suspect]
     Active Substance: ZOPICLONE
     Indication: Insomnia
     Dosage: 15 MG, QD,TOTAL DOSE, ONCE/SINGLE ADMINISTRATION
     Route: 048
     Dates: start: 20220127, end: 20220127
  5. ATORVASTATIN [Suspect]
     Active Substance: ATORVASTATIN
     Indication: Dyslipidaemia
     Dosage: 80 MG, TOTAL DOSE, ONCE/SINGLE ADMINISTRATION
     Route: 048
     Dates: start: 20220127, end: 20220127
  6. METOCLOPRAMIDE HYDROCHLORIDE [Suspect]
     Active Substance: METOCLOPRAMIDE HYDROCHLORIDE
     Indication: Benign prostatic hyperplasia
     Dosage: 1.6 MG, TOTAL DOSE, ONCE/SINGLE ADMINISTRATION
     Route: 048
     Dates: start: 20220127, end: 20220127
  7. QUETIAPINE FUMARATE [Suspect]
     Active Substance: QUETIAPINE FUMARATE
     Indication: Bipolar disorder
     Dosage: 400 MG, QD, TOTAL DOSE, ONCE/SINGLE ADMINISTRATION
     Route: 048
     Dates: start: 20220127, end: 20220127
  8. TAMSULOSIN HYDROCHLORIDE [Suspect]
     Active Substance: TAMSULOSIN HYDROCHLORIDE
     Indication: Benign prostatic hyperplasia
     Dosage: 1.6 MG, QD, TOTAL DOSE, ONCE/SINGLE ADMINISTRATION
     Route: 048
     Dates: start: 20220127, end: 20220127
  9. LORMETAZEPAM [Suspect]
     Active Substance: LORMETAZEPAM
     Indication: Anxiety
     Dosage: 4 MG, QD, TOTAL DOSE, ONCE/SINGLE ADMINISTRATION
     Route: 048
     Dates: start: 20220127, end: 20220127
  10. LOPERAMIDE HYDROCHLORIDE [Suspect]
     Active Substance: LOPERAMIDE HYDROCHLORIDE
     Indication: Pain
     Dosage: 1.6 MG, QD, TOTAL DOSE, ONCE/SINGLE ADMINISTRATION
     Route: 048
     Dates: start: 20220127, end: 20220127
  11. METFORMIN HYDROCHLORIDE [Suspect]
     Active Substance: METFORMIN HYDROCHLORIDE
     Indication: Type 2 diabetes mellitus
     Dosage: 8 G
     Route: 048
     Dates: start: 20220127, end: 20220127
  12. XARELTO [Suspect]
     Active Substance: RIVAROXABAN
     Indication: Atrial fibrillation
     Dosage: 60 MG, QD
     Route: 048
     Dates: start: 20220127, end: 20220127
  13. GABAPENTIN [Suspect]
     Active Substance: GABAPENTIN
     Indication: Neuralgia
     Dosage: 3600 MG, QD, TOTAL DOSE, ONCE/SINGLE ADMINISTRATION
     Route: 048
     Dates: start: 20220127, end: 20220127
  14. LAMICTAL [Suspect]
     Active Substance: LAMOTRIGINE
     Indication: Bipolar disorder
     Dosage: 1000 MG, QD
     Route: 048
     Dates: start: 20220127, end: 20220127
  15. PROCAINE HYDROCHLORIDE [Suspect]
     Active Substance: PROCAINE HYDROCHLORIDE
     Indication: Pain
     Dosage: 400 MG, QD
     Route: 048
     Dates: start: 20220127, end: 20220127
  16. MESTINON [Suspect]
     Active Substance: PYRIDOSTIGMINE BROMIDE
     Indication: Parkinsonism
     Dosage: 480 MG, QD, TOTAL DOSE, ONCE/SINGLE ADMINISTRATION
     Route: 048
     Dates: start: 20220127, end: 20220127
  17. OXCARBAZEPINE [Suspect]
     Active Substance: OXCARBAZEPINE
     Indication: Bipolar disorder
     Dosage: 2400 MG, QD,TOTAL DOSE, ONCE/SINGLE ADMINISTRATION
     Route: 048
     Dates: start: 20220127, end: 20220127
  18. QUETIAPINE FUMARATE [Suspect]
     Active Substance: QUETIAPINE FUMARATE
     Indication: Bipolar disorder
     Dosage: 400 MG, QD
     Route: 048
     Dates: start: 20220127, end: 20220127
  19. METFORMIN HYDROCHLORIDE [Suspect]
     Active Substance: METFORMIN HYDROCHLORIDE
     Indication: Type 2 diabetes mellitus
     Dosage: 8 GRAM, QD
     Route: 048
     Dates: start: 20220127, end: 20220127
  20. RIVAROXABAN [Suspect]
     Active Substance: RIVAROXABAN
     Indication: Atrial fibrillation
     Dosage: 60 MILLIGRAM, TOTAL DOSE, ONCE/SINGLE ADMINISTRATION
     Route: 048
     Dates: start: 20220127, end: 20220127
  21. LAMOTRIGINE [Suspect]
     Active Substance: LAMOTRIGINE
     Indication: Bipolar disorder
     Dosage: 1000 MILLIGRAM, TOTAL, ONCE/SINGLE ADMINISTRATION
     Dates: start: 20220127, end: 20220127
  22. TRAMADOL HYDROCHLORIDE [Suspect]
     Active Substance: TRAMADOL HYDROCHLORIDE
     Indication: Pain
     Dosage: 400 MILLIGRAM, QD, TOTAL DOSE, ONCE/SINGLE ADMINISTRATION
     Dates: start: 20220127, end: 20220127
  23. ACETAMINOPHEN [Concomitant]
     Active Substance: ACETAMINOPHEN
     Indication: Product used for unknown indication
     Dosage: UNKNOWN
     Route: 065
  24. CHOLECALCIFEROL [Concomitant]
     Active Substance: CHOLECALCIFEROL
     Indication: Product used for unknown indication
     Dosage: UNKNOWN
     Route: 065

REACTIONS (4)
  - Coma [Recovered/Resolved]
  - Acute kidney injury [Recovered/Resolved]
  - Lactic acidosis [Recovered/Resolved]
  - Poisoning deliberate [Recovered/Resolved]

NARRATIVE: CASE EVENT DATE: 20220127
